FAERS Safety Report 10336840 (Version 1)
Quarter: 2014Q3

REPORT INFORMATION
  Report Type: Report from Study
  Country: US (occurrence: US)
  Receive Date: 20140723
  Receipt Date: 20140723
  Transmission Date: 20150326
  Serious: Yes (Other)
  Sender: FDA-Public Use
  Company Number: US-BRISTOL-MYERS SQUIBB COMPANY-21196886

PATIENT
  Age: 87 Year
  Sex: Male

DRUGS (1)
  1. BYETTA [Suspect]
     Active Substance: EXENATIDE

REACTIONS (5)
  - Blood cholesterol decreased [Unknown]
  - Visual impairment [Unknown]
  - Coronary artery disease [Unknown]
  - Weight abnormal [Unknown]
  - Hypertension [Unknown]
